FAERS Safety Report 4340515-8 (Version None)
Quarter: 2004Q2

REPORT INFORMATION
  Report Type: 
  Country: None (occurrence: None)
  Receive Date: 20040414
  Receipt Date: 20040329
  Transmission Date: 20050107
  Serious: Yes (Other)
  Sender: FDA-Public Use
  Company Number: DSA_24040_2004

PATIENT
  Age: 74 Year
  Sex: Male

DRUGS (7)
  1. LORAZEPAM [Suspect]
  2. LORAZEPAM [Suspect]
     Dosage: 1 MG PRN PO
     Route: 048
  3. CLOZAPINE [Suspect]
     Dosage: 100 MG ONCE
  4. LITHIUM CARBONATE [Suspect]
     Dosage: 400 MG
  5. ACETAMINOPHEN [Suspect]
     Dosage: 500 MG TID
  6. TEMAZEPAM [Suspect]
     Dosage: 10 MG QHS
  7. PIMOZIDE [Concomitant]

REACTIONS (6)
  - COMA [None]
  - DRUG TOXICITY [None]
  - MEDICATION ERROR [None]
  - MIOSIS [None]
  - RED BLOOD CELL SEDIMENTATION RATE INCREASED [None]
  - SOMNOLENCE [None]
